FAERS Safety Report 13980706 (Version 1)
Quarter: 2017Q3

REPORT INFORMATION
  Report Type: Report from Study
  Country: MX (occurrence: MX)
  Receive Date: 20170918
  Receipt Date: 20170918
  Transmission Date: 20171128
  Serious: Yes (Other)
  Sender: FDA-Public Use
  Company Number: MX-TEVA-807714ACC

PATIENT
  Age: 44 Year
  Sex: Female

DRUGS (2)
  1. RIBOBUSTAN [Suspect]
     Active Substance: BENDAMUSTINE HYDROCHLORIDE
     Indication: DIFFUSE LARGE B-CELL LYMPHOMA
     Dosage: (TWO CYCLES)
     Route: 042
  2. RITUXIMAB. [Concomitant]
     Active Substance: RITUXIMAB
     Indication: DIFFUSE LARGE B-CELL LYMPHOMA
     Route: 065

REACTIONS (4)
  - Diffuse large B-cell lymphoma [Unknown]
  - Lymphadenopathy [Not Recovered/Not Resolved]
  - Product use in unapproved indication [Unknown]
  - Stevens-Johnson syndrome [Unknown]
